FAERS Safety Report 4428654-4 (Version None)
Quarter: 2004Q3

REPORT INFORMATION
  Report Type: 
  Country: None (occurrence: None)
  Receive Date: 20040818
  Receipt Date: 20030828
  Transmission Date: 20050211
  Serious: No
  Sender: FDA-Public Use
  Company Number: US-BRISTOL-MYERS SQUIBB COMPANY-12371498

PATIENT
  Age: 48 Year
  Sex: Female
  Weight: 60 kg

DRUGS (2)
  1. TEQUIN [Suspect]
     Indication: GINGIVAL INFECTION
     Route: 048
     Dates: start: 20030825, end: 20030827
  2. MAXZIDE [Concomitant]
     Indication: HYPERTENSION

REACTIONS (9)
  - AGITATION [None]
  - AMNESIA [None]
  - CONFUSIONAL STATE [None]
  - DIZZINESS [None]
  - DRY MOUTH [None]
  - HUNGER [None]
  - KERATOCONJUNCTIVITIS SICCA [None]
  - SINUS DISORDER [None]
  - THIRST [None]
